FAERS Safety Report 20895515 (Version 1)
Quarter: 2022Q2

REPORT INFORMATION
  Report Type: Report from Study
  Country: GB (occurrence: GB)
  Receive Date: 20220531
  Receipt Date: 20220531
  Transmission Date: 20220720
  Serious: Yes (Other)
  Sender: FDA-Public Use
  Company Number: GB-SAMSUNG BIOEPIS-SB-2022-05308

PATIENT
  Age: 41 Year
  Sex: Female

DRUGS (4)
  1. SOLIFENACIN [Suspect]
     Active Substance: SOLIFENACIN
     Indication: Product used for unknown indication
     Dosage: UNK UNK, UNKNOWN FREQ.
     Route: 065
  2. ETANERCEPT [Suspect]
     Active Substance: ETANERCEPT
     Indication: Rheumatoid arthritis
     Dosage: UNK UNK, UNKNOWN FREQ.
     Route: 065
  3. ETANERCEPT [Suspect]
     Active Substance: ETANERCEPT
     Route: 058
     Dates: start: 20220211
  4. METHOTREXATE [Suspect]
     Active Substance: METHOTREXATE
     Indication: Product used for unknown indication
     Dosage: UNK UNK, UNKNOWN FREQ.
     Route: 065

REACTIONS (8)
  - Pneumonia [Not Recovered/Not Resolved]
  - Swelling face [Not Recovered/Not Resolved]
  - Eye swelling [Recovering/Resolving]
  - Contusion [Not Recovered/Not Resolved]
  - Fatigue [Not Recovered/Not Resolved]
  - Musculoskeletal stiffness [Not Recovered/Not Resolved]
  - Weight increased [Not Recovered/Not Resolved]
  - Therapeutic response shortened [Not Recovered/Not Resolved]
